FAERS Safety Report 7035923-0 (Version None)
Quarter: 2010Q4

REPORT INFORMATION
  Report Type: 
  Country: None (occurrence: None)
  Receive Date: 20101007
  Receipt Date: 20101007
  Transmission Date: 20110411
  Serious: Yes (Life-Threatening)
  Sender: FDA-Public Use
  Company Number: None

PATIENT
  Sex: Female
  Weight: 20.9 kg

DRUGS (4)
  1. EPIPEN [Suspect]
     Indication: RESPIRATORY FAILURE
     Dosage: 0.15 MG 1TIMES IM
     Route: 030
     Dates: start: 20101004, end: 20101004
  2. EPIPEN [Suspect]
     Indication: STATUS ASTHMATICUS
     Dosage: 0.15 MG 1TIMES IM
     Route: 030
     Dates: start: 20101004, end: 20101004
  3. ALBUTEROL [Concomitant]
  4. IPRATROPIUM BROMIDE [Concomitant]

REACTIONS (4)
  - BLOOD PRESSURE DIASTOLIC DECREASED [None]
  - DEVICE FAILURE [None]
  - HEART RATE INCREASED [None]
  - RESPIRATORY RATE INCREASED [None]
